FAERS Safety Report 9363722 (Version 2)
Quarter: 2013Q3

REPORT INFORMATION
  Report Type: Spontaneous
  Country: US (occurrence: US)
  Receive Date: 20130624
  Receipt Date: 20130731
  Transmission Date: 20140515
  Serious: No
  Sender: FDA-Public Use
  Company Number: US-009507513-1306USA009283

PATIENT
  Sex: Female

DRUGS (2)
  1. AZASITE [Suspect]
     Dosage: ONE DROP IN EACH EYE
     Route: 047
     Dates: start: 2013
  2. DOXYCYCLINE [Concomitant]
     Dosage: 50 MG, QD

REACTIONS (2)
  - Eye irritation [Unknown]
  - Inappropriate schedule of drug administration [Unknown]
